FAERS Safety Report 4452856-4 (Version None)
Quarter: 2004Q3

REPORT INFORMATION
  Report Type: 
  Country: None (occurrence: None)
  Receive Date: 20040916
  Receipt Date: 20040901
  Transmission Date: 20050211
  Serious: Yes (Hospitalization, Other)
  Sender: FDA-Public Use
  Company Number: A-US2004-04269

PATIENT
  Age: 45 Year
  Sex: Female

DRUGS (17)
  1. TRACLEER [Suspect]
     Indication: PULMONARY HYPERTENSION
     Dosage: SEE IMAGE
     Route: 048
     Dates: start: 20021015, end: 20021028
  2. TRACLEER [Suspect]
     Indication: PULMONARY HYPERTENSION
     Dosage: SEE IMAGE
     Route: 048
     Dates: start: 20021029, end: 20021111
  3. TRACLEER [Suspect]
     Indication: PULMONARY HYPERTENSION
     Dosage: SEE IMAGE
     Route: 048
     Dates: start: 20021112, end: 20021125
  4. TRACLEER [Suspect]
     Indication: PULMONARY HYPERTENSION
     Dosage: SEE IMAGE
     Route: 048
     Dates: start: 20021126, end: 20030120
  5. TRACLEER [Suspect]
     Indication: PULMONARY HYPERTENSION
     Dosage: SEE IMAGE
     Route: 048
     Dates: start: 20030121, end: 20031225
  6. SANDIMMUNE [Concomitant]
  7. DELTASONE [Concomitant]
  8. NORVASC [Concomitant]
  9. LANOXIN [Concomitant]
  10. LASIX [Concomitant]
  11. POTASSIUM CHLORIDE [Concomitant]
  12. ALDACTONE [Concomitant]
  13. OXYGEN (OXYGEN) [Concomitant]
  14. CALCIUM CARBONATE (CALCIUM CARBONATE) [Concomitant]
  15. CHROMAGEN (STOMACH DESICCATED, FERROUS FUMARATE, CYANOCOBALAMIN, ASCOR [Concomitant]
  16. FOLVITE (FOLIC ACID) [Concomitant]
  17. FLOLAN [Concomitant]

REACTIONS (1)
  - AUTOIMMUNE HEPATITIS [None]
